FAERS Safety Report 25548701 (Version 1)
Quarter: 2025Q3

REPORT INFORMATION
  Report Type: Spontaneous
  Country: EU (occurrence: EU)
  Receive Date: 20250714
  Receipt Date: 20250714
  Transmission Date: 20251020
  Serious: Yes (Other)
  Sender: MYLAN
  Company Number: EU-MYLANLABS-2025M1057970

PATIENT
  Age: 68 Year
  Sex: Female

DRUGS (44)
  1. SUMATRIPTAN [Suspect]
     Active Substance: SUMATRIPTAN
     Indication: Abdominal migraine
  2. SUMATRIPTAN [Suspect]
     Active Substance: SUMATRIPTAN
     Route: 065
  3. SUMATRIPTAN [Suspect]
     Active Substance: SUMATRIPTAN
     Route: 065
  4. SUMATRIPTAN [Suspect]
     Active Substance: SUMATRIPTAN
  5. RIZATRIPTAN [Suspect]
     Active Substance: RIZATRIPTAN
     Indication: Abdominal migraine
  6. RIZATRIPTAN [Suspect]
     Active Substance: RIZATRIPTAN
     Route: 065
  7. RIZATRIPTAN [Suspect]
     Active Substance: RIZATRIPTAN
     Route: 065
  8. RIZATRIPTAN [Suspect]
     Active Substance: RIZATRIPTAN
  9. CANDESARTAN [Suspect]
     Active Substance: CANDESARTAN
     Indication: Migraine prophylaxis
  10. CANDESARTAN [Suspect]
     Active Substance: CANDESARTAN
     Route: 065
  11. CANDESARTAN [Suspect]
     Active Substance: CANDESARTAN
     Route: 065
  12. CANDESARTAN [Suspect]
     Active Substance: CANDESARTAN
  13. PROPRANOLOL [Suspect]
     Active Substance: PROPRANOLOL HYDROCHLORIDE
     Indication: Migraine prophylaxis
  14. PROPRANOLOL [Suspect]
     Active Substance: PROPRANOLOL HYDROCHLORIDE
     Route: 065
  15. PROPRANOLOL [Suspect]
     Active Substance: PROPRANOLOL HYDROCHLORIDE
     Route: 065
  16. PROPRANOLOL [Suspect]
     Active Substance: PROPRANOLOL HYDROCHLORIDE
  17. LISINOPRIL [Suspect]
     Active Substance: LISINOPRIL
     Indication: Migraine prophylaxis
  18. LISINOPRIL [Suspect]
     Active Substance: LISINOPRIL
     Route: 065
  19. LISINOPRIL [Suspect]
     Active Substance: LISINOPRIL
     Route: 065
  20. LISINOPRIL [Suspect]
     Active Substance: LISINOPRIL
  21. LAMOTRIGINE [Suspect]
     Active Substance: LAMOTRIGINE
     Indication: Migraine prophylaxis
  22. LAMOTRIGINE [Suspect]
     Active Substance: LAMOTRIGINE
     Route: 065
  23. LAMOTRIGINE [Suspect]
     Active Substance: LAMOTRIGINE
     Route: 065
  24. LAMOTRIGINE [Suspect]
     Active Substance: LAMOTRIGINE
  25. ELETRIPTAN [Suspect]
     Active Substance: ELETRIPTAN
     Indication: Abdominal migraine
  26. ELETRIPTAN [Suspect]
     Active Substance: ELETRIPTAN
     Route: 065
  27. ELETRIPTAN [Suspect]
     Active Substance: ELETRIPTAN
     Route: 065
  28. ELETRIPTAN [Suspect]
     Active Substance: ELETRIPTAN
  29. DICLOFENAC [Concomitant]
     Active Substance: DICLOFENAC
     Indication: Abdominal migraine
  30. DICLOFENAC [Concomitant]
     Active Substance: DICLOFENAC
     Route: 065
  31. DICLOFENAC [Concomitant]
     Active Substance: DICLOFENAC
     Route: 065
  32. DICLOFENAC [Concomitant]
     Active Substance: DICLOFENAC
  33. TOLFENAMIC ACID [Concomitant]
     Active Substance: TOLFENAMIC ACID
     Indication: Abdominal migraine
  34. TOLFENAMIC ACID [Concomitant]
     Active Substance: TOLFENAMIC ACID
     Route: 065
  35. TOLFENAMIC ACID [Concomitant]
     Active Substance: TOLFENAMIC ACID
     Route: 065
  36. TOLFENAMIC ACID [Concomitant]
     Active Substance: TOLFENAMIC ACID
  37. NAPROXEN [Concomitant]
     Active Substance: NAPROXEN
     Indication: Abdominal migraine
  38. NAPROXEN [Concomitant]
     Active Substance: NAPROXEN
     Route: 065
  39. NAPROXEN [Concomitant]
     Active Substance: NAPROXEN
     Route: 065
  40. NAPROXEN [Concomitant]
     Active Substance: NAPROXEN
  41. CODEINE [Concomitant]
     Active Substance: CODEINE
     Indication: Abdominal migraine
  42. CODEINE [Concomitant]
     Active Substance: CODEINE
     Route: 065
  43. CODEINE [Concomitant]
     Active Substance: CODEINE
     Route: 065
  44. CODEINE [Concomitant]
     Active Substance: CODEINE

REACTIONS (2)
  - Drug ineffective [Unknown]
  - Off label use [Unknown]
